FAERS Safety Report 6635491-9 (Version None)
Quarter: 2010Q1

REPORT INFORMATION
  Report Type: 
  Country: None (occurrence: None)
  Receive Date: 20100315
  Receipt Date: 20090626
  Transmission Date: 20100710
  Serious: No
  Sender: FDA-Public Use
  Company Number: US-ABBOTT-09P-163-0582521-00

PATIENT
  Sex: Female
  Weight: 113.05 kg

DRUGS (2)
  1. DEPAKOTE [Suspect]
     Indication: ROAD TRAFFIC ACCIDENT
     Route: 048
     Dates: start: 19990101, end: 19990101
  2. DEPAKOTE [Suspect]
     Indication: HEAD INJURY

REACTIONS (2)
  - HAEMORRHAGE [None]
  - LOSS OF CONSCIOUSNESS [None]
